FAERS Safety Report 4402654-2 (Version None)
Quarter: 2004Q3

REPORT INFORMATION
  Report Type: 
  Country: None (occurrence: None)
  Receive Date: 20040715
  Receipt Date: 20040702
  Transmission Date: 20050211
  Serious: Yes (Disabling, Other)
  Sender: FDA-Public Use
  Company Number: 2004032181

PATIENT
  Sex: Female

DRUGS (26)
  1. DILANTIN KAPSEAL [Suspect]
     Indication: CONVULSION
     Dosage: 400 MG (TID), ORAL
     Route: 048
  2. GENERAL NUTRIENTS (GENERAL NUTRIENTS) [Suspect]
     Indication: ILL-DEFINED DISORDER
  3. TIZANIDINE HYDROCHLORIDE [Concomitant]
  4. BACLOFEN [Concomitant]
  5. NITROFURANTOIN [Concomitant]
  6. PHENOBARBITAL TAB [Concomitant]
  7. DOCUSATE SODIUM [Concomitant]
  8. IRON [Concomitant]
  9. ALENDRONATE SODIUM [Concomitant]
  10. CALCIUM CARBONATE [Concomitant]
  11. LACTULOSE [Concomitant]
  12. FERROUS SULFATE TAB [Concomitant]
  13. PERI-COLACE [Concomitant]
  14. FOLIC ACID [Concomitant]
  15. MULTIVITAMIN [Concomitant]
  16. ERGOCALCIFEROL [Concomitant]
  17. ETHYLBENZYL ALCOHOL [Concomitant]
  18. CHLORHEXIDINE GLUCONATE [Concomitant]
  19. LIGHT LIQUID PARAFFIN [Concomitant]
  20. VITAMIDYNE A AND D (ERGOCALCIFEROL, RETINOL) [Concomitant]
  21. BISACODYL [Concomitant]
  22. FLEET ENEMA (SODIUM PHOSPHATE, SODIUM PHOSPHATE DIBASIC) [Concomitant]
  23. SOFT SOAP [Concomitant]
  24. MAGNESIUM CITRATE SOLUTION (CITRIC ACID, MAGNESIUM CARBONATE, POTASSIU [Concomitant]
  25. PROCHLORPERAZINE EDISYLATE [Concomitant]
  26. BACITRACIN [Concomitant]

REACTIONS (16)
  - ANAEMIA [None]
  - ANTICONVULSANT DRUG LEVEL DECREASED [None]
  - CEREBRAL PALSY [None]
  - CHOLECYSTECTOMY [None]
  - CONDITION AGGRAVATED [None]
  - CONSTIPATION [None]
  - CONVULSION [None]
  - DIPLEGIA [None]
  - FOOD INTERACTION [None]
  - INCONTINENCE [None]
  - MENTAL RETARDATION SEVERITY UNSPECIFIED [None]
  - OEDEMA PERIPHERAL [None]
  - OSTEOARTHRITIS [None]
  - OSTEOPOROSIS [None]
  - PNEUMONIA ASPIRATION [None]
  - RASH [None]
